FAERS Safety Report 20814594 (Version 1)
Quarter: 2022Q2

REPORT INFORMATION
  Report Type: Report from Study
  Country: US (occurrence: US)
  Receive Date: 20220511
  Receipt Date: 20220511
  Transmission Date: 20220721
  Serious: Yes (Hospitalization)
  Sender: FDA-Public Use
  Company Number: US-ELI_LILLY_AND_COMPANY-US202205000459

PATIENT
  Sex: Female

DRUGS (1)
  1. FLUOXETINE HYDROCHLORIDE [Suspect]
     Active Substance: FLUOXETINE HYDROCHLORIDE
     Indication: Product used for unknown indication
     Dosage: 20 MG, EACH MORNING
     Route: 065
     Dates: start: 20220121

REACTIONS (4)
  - Nephrolithiasis [Unknown]
  - Spinal disorder [Unknown]
  - Arthralgia [Unknown]
  - Muscle spasms [Unknown]
